FAERS Safety Report 8389597 (Version 3)
Quarter: 2015Q1

REPORT INFORMATION
  Report Type: Report from Study
  Country: US (occurrence: US)
  Receive Date: 20120203
  Receipt Date: 20150312
  Transmission Date: 20150721
  Serious: Yes (Death)
  Sender: FDA-Public Use
  Company Number: US-ROCHE-1036276

PATIENT
  Age: 42 Year
  Sex: Female

DRUGS (22)
  1. MORPHINE SULFATE. [Concomitant]
     Active Substance: MORPHINE SULFATE
  2. AVASTIN [Suspect]
     Active Substance: BEVACIZUMAB
     Route: 065
     Dates: start: 20061024
  3. VINORELBINE TARTRATE. [Concomitant]
     Active Substance: VINORELBINE TARTRATE
  4. FLEXERIL [Concomitant]
     Active Substance: CYCLOBENZAPRINE HYDROCHLORIDE
  5. REGLAN [Concomitant]
     Active Substance: METOCLOPRAMIDE HYDROCHLORIDE
  6. DECADRON [Concomitant]
     Active Substance: DEXAMETHASONE
  7. OXYCONTIN [Concomitant]
     Active Substance: OXYCODONE HYDROCHLORIDE
  8. ATIVAN [Concomitant]
     Active Substance: LORAZEPAM
  9. CARAFATE [Concomitant]
     Active Substance: SUCRALFATE
  10. XELODA [Suspect]
     Active Substance: CAPECITABINE
     Indication: PRODUCT USED FOR UNKNOWN INDICATION
     Route: 065
  11. NEULASTA [Suspect]
     Active Substance: PEGFILGRASTIM
     Indication: PRODUCT USED FOR UNKNOWN INDICATION
     Route: 065
  12. ADRIA [Concomitant]
  13. LORTAB (UNITED STATES) [Concomitant]
  14. ZOFRAN ODT [Concomitant]
     Active Substance: ONDANSETRON HYDROCHLORIDE
  15. ROXANOL [Concomitant]
     Active Substance: MORPHINE SULFATE
  16. AVASTIN [Suspect]
     Active Substance: BEVACIZUMAB
     Indication: BREAST CANCER FEMALE
     Route: 065
     Dates: start: 20060926
  17. CARBOPLATIN. [Concomitant]
     Active Substance: CARBOPLATIN
  18. AVASTIN [Suspect]
     Active Substance: BEVACIZUMAB
     Route: 065
     Dates: start: 20061010
  19. ROCEPHIN [Suspect]
     Active Substance: CEFTRIAXONE SODIUM
     Indication: PRODUCT USED FOR UNKNOWN INDICATION
     Route: 065
  20. KYTRIL [Suspect]
     Active Substance: GRANISETRON HYDROCHLORIDE
     Indication: PRODUCT USED FOR UNKNOWN INDICATION
     Route: 065
  21. NAVELBINE [Concomitant]
     Active Substance: VINORELBINE TARTRATE
  22. TAXOL [Concomitant]
     Active Substance: PACLITAXEL

REACTIONS (20)
  - Death [Fatal]
  - Nausea [Unknown]
  - Constipation [Unknown]
  - Cough [Unknown]
  - Vomiting [Unknown]
  - Nasal congestion [Unknown]
  - Pyrexia [Unknown]
  - Disease progression [Unknown]
  - Dyspnoea [Unknown]
  - Depression [Unknown]
  - Decreased appetite [Unknown]
  - No therapeutic response [Unknown]
  - Chest pain [Unknown]
  - Fatigue [Unknown]
  - Chills [Unknown]
  - Hot flush [Unknown]
  - Neuropathy peripheral [Unknown]
  - Anxiety [Unknown]
  - Weight decreased [Unknown]
  - Off label use [Unknown]

NARRATIVE: CASE EVENT DATE: 20061118
